FAERS Safety Report 12827664 (Version 3)
Quarter: 2018Q2

REPORT INFORMATION
  Report Type: Spontaneous
  Country: US (occurrence: US)
  Receive Date: 20161007
  Receipt Date: 20180426
  Transmission Date: 20180711
  Serious: Yes (Hospitalization, Other)
  Sender: FDA-Public Use
  Company Number: US-009507513-1609USA012680

PATIENT
  Age: 79 Year
  Sex: Male
  Weight: 75.5 kg

DRUGS (3)
  1. TORSEMIDE. [Suspect]
     Active Substance: TORSEMIDE
     Indication: CARDIOMYOPATHY
     Dosage: 40 MG, DAILY
     Route: 048
  2. TORSEMIDE. [Suspect]
     Active Substance: TORSEMIDE
     Dosage: 20 MG, DAILY
     Dates: start: 20150731
  3. PRINIVIL [Suspect]
     Active Substance: LISINOPRIL
     Indication: HYPERTENSION
     Dosage: 10 MG, QD
     Route: 048
     Dates: start: 20110701

REACTIONS (3)
  - Bradycardia [Recovered/Resolved]
  - Cardiac failure congestive [Recovered/Resolved]
  - Blood creatinine increased [Unknown]

NARRATIVE: CASE EVENT DATE: 20150731
